FAERS Safety Report 14531181 (Version 1)
Quarter: 2018Q1

REPORT INFORMATION
  Report Type: Spontaneous
  Country: US (occurrence: US)
  Receive Date: 20180214
  Receipt Date: 20180214
  Transmission Date: 20180509
  Serious: Yes (Death, Other)
  Sender: FDA-Public Use
  Company Number: US-HQ SPECIALTY-US-2018INT000024

PATIENT
  Age: 39 Year
  Sex: Male

DRUGS (1)
  1. MAGNESIUM SULFATE IN DEXTROSE [Suspect]
     Active Substance: MAGNESIUM SULFATE
     Indication: PRODUCT USED FOR UNKNOWN INDICATION
     Dosage: 6 POUNDS
     Route: 048

REACTIONS (24)
  - Unresponsive to stimuli [Unknown]
  - Albumin globulin ratio increased [None]
  - Electrocardiogram QRS complex prolonged [None]
  - Completed suicide [Fatal]
  - Blood pressure systolic decreased [Unknown]
  - Heart rate decreased [Unknown]
  - Blood urea increased [None]
  - Corneal light reflex test abnormal [None]
  - PCO2 increased [None]
  - Electrocardiogram QT prolonged [None]
  - Sepsis [None]
  - Toxicity to various agents [Fatal]
  - Poisoning [None]
  - Blood potassium increased [None]
  - Body temperature decreased [None]
  - Blood pH decreased [None]
  - Coma scale [Unknown]
  - Blood glucose increased [None]
  - Oxygen saturation decreased [Unknown]
  - Coma scale abnormal [None]
  - Blood chloride increased [None]
  - Blood magnesium increased [None]
  - PO2 decreased [None]
  - Pupil fixed [None]

NARRATIVE: CASE EVENT DATE: 2016
